FAERS Safety Report 8251035-2 (Version None)
Quarter: 2012Q2

REPORT INFORMATION
  Report Type: 
  Country: None (occurrence: None)
  Receive Date: 20120402
  Receipt Date: 20120326
  Transmission Date: 20120825
  Serious: Yes (Hospitalization, Other)
  Sender: FDA-Public Use
  Company Number: US-BAYER-2011-119805

PATIENT
  Age: 21 Year
  Sex: Female
  Weight: 72.562 kg

DRUGS (7)
  1. AZITHROMYCIN [Concomitant]
     Dosage: 250 MG, UNK
     Route: 048
     Dates: start: 20091020
  2. IBUPROFEN [Concomitant]
     Dosage: 60 MG, UNK
     Route: 048
     Dates: start: 20091020
  3. IRON SUPPLEMENT [Concomitant]
     Dosage: UNK
     Dates: start: 20091201
  4. DROSPIRENONE AND ETHINYL ESTRADIOL [Suspect]
     Dosage: UNK
     Route: 048
     Dates: start: 20090101, end: 20090101
  5. TRIMETHOPRIM + SULFAMETHOXAZOLE [Concomitant]
     Dosage: UNK
     Route: 048
     Dates: start: 20091106
  6. LORATADINE [Concomitant]
     Dosage: 10 MG, UNK
     Route: 048
     Dates: start: 20091020
  7. NARCAN [Concomitant]
     Indication: DRUG ABUSE
     Dosage: 2 MG, UNK
     Route: 042
     Dates: start: 20091101

REACTIONS (4)
  - CHOLECYSTITIS CHRONIC [None]
  - GALLBLADDER NON-FUNCTIONING [None]
  - CHOLELITHIASIS [None]
  - PAIN [None]
